FAERS Safety Report 19774349 (Version 2)
Quarter: 2021Q4

REPORT INFORMATION
  Report Type: Report from Study
  Country: CA (occurrence: CA)
  Receive Date: 20210901
  Receipt Date: 20211020
  Transmission Date: 20220303
  Serious: Yes (Hospitalization, Other)
  Sender: FDA-Public Use
  Company Number: CA-TAKEDA-2015TUS013311

PATIENT
  Age: 21 Year
  Sex: Male
  Weight: 63 kg

DRUGS (15)
  1. VEDOLIZUMAB [Suspect]
     Active Substance: VEDOLIZUMAB
     Indication: Crohn^s disease
     Dosage: 300 MILLIGRAM
     Route: 042
     Dates: start: 20150903
  2. VEDOLIZUMAB [Suspect]
     Active Substance: VEDOLIZUMAB
     Dosage: 300 MILLIGRAM
     Route: 042
  3. VEDOLIZUMAB [Suspect]
     Active Substance: VEDOLIZUMAB
     Dosage: 300 MILLIGRAM
     Route: 042
  4. VEDOLIZUMAB [Suspect]
     Active Substance: VEDOLIZUMAB
     Dosage: 300 MILLIGRAM
     Route: 042
  5. VEDOLIZUMAB [Suspect]
     Active Substance: VEDOLIZUMAB
     Dosage: 300 MILLIGRAM
     Route: 042
  6. BENADRYL [Suspect]
     Active Substance: DIPHENHYDRAMINE HYDROCHLORIDE
     Indication: Product used for unknown indication
     Dosage: 50 MILLIGRAM
     Route: 048
     Dates: start: 20150903
  7. METHYLPREDNISOLONE [Concomitant]
     Active Substance: METHYLPREDNISOLONE
     Indication: Premedication
     Dosage: 80 MILLIGRAM
     Route: 042
     Dates: start: 20150903
  8. ACETAMINOPHEN [Concomitant]
     Active Substance: ACETAMINOPHEN
     Indication: Premedication
     Dosage: 650 MILLIGRAM
     Route: 048
     Dates: start: 20150903
  9. DIPHENHYDRAMINE [Concomitant]
     Active Substance: DIPHENHYDRAMINE
     Indication: Premedication
     Dosage: 50 MILLIGRAM
     Route: 048
     Dates: start: 20150903
  10. PROGRAF [Concomitant]
     Active Substance: TACROLIMUS
     Dosage: UNK
  11. ASACOL [Concomitant]
     Active Substance: MESALAMINE
     Dosage: UNK
  12. IRON [Concomitant]
     Active Substance: IRON
     Dosage: UNK
  13. ASPIRIN [Concomitant]
     Active Substance: ASPIRIN
     Dosage: UNK
  14. MAGNESIUM [Concomitant]
     Active Substance: MAGNESIUM
     Dosage: UNK
  15. VITAMIN D NOS [Concomitant]
     Active Substance: VITAMIN D NOS
     Dosage: UNK

REACTIONS (7)
  - Gastrointestinal inflammation [Unknown]
  - Clostridium difficile infection [Unknown]
  - Haematochezia [Unknown]
  - Somnolence [Recovered/Resolved]
  - Hypersomnia [Recovered/Resolved]
  - Fatigue [Recovered/Resolved with Sequelae]
  - Off label use [Unknown]

NARRATIVE: CASE EVENT DATE: 20150903
